FAERS Safety Report 7658564-0 (Version None)
Quarter: 2011Q3

REPORT INFORMATION
  Report Type: 
  Country: None (occurrence: None)
  Receive Date: 20110802
  Receipt Date: 20110719
  Transmission Date: 20111222
  Serious: Yes (Hospitalization)
  Sender: FDA-Public Use
  Company Number: 2011P1007779

PATIENT
  Age: 2 Month
  Sex: Female

DRUGS (5)
  1. DARAPRIM [Suspect]
     Indication: CYTOGENETIC ABNORMALITY
     Dosage: 1.8 ML;QD;PO , 2.5 ML;QD;PO
     Route: 048
     Dates: start: 20110707
  2. DARAPRIM [Suspect]
     Indication: CYTOGENETIC ABNORMALITY
     Dosage: 1.8 ML;QD;PO , 2.5 ML;QD;PO
     Route: 048
     Dates: start: 20110601, end: 20110627
  3. DARAPRIM [Suspect]
     Indication: CYTOGENETIC ABNORMALITY
     Dosage: 1.8 ML;QD;PO , 2.5 ML;QD;PO
     Route: 048
     Dates: end: 20110601
  4. SULFADIAZINE [Concomitant]
  5. LIQUID LEUCOVORIN [Concomitant]

REACTIONS (1)
  - NEUTROPENIA [None]
